FAERS Safety Report 7288717-5 (Version None)
Quarter: 2011Q1

REPORT INFORMATION
  Report Type: 
  Country: None (occurrence: None)
  Receive Date: 20110211
  Receipt Date: 20110201
  Transmission Date: 20110831
  Serious: Yes (Other)
  Sender: FDA-Public Use
  Company Number: PHHY2011BR08660

PATIENT
  Sex: Female

DRUGS (4)
  1. FORASEQ [Suspect]
  2. PURAN [Suspect]
  3. OMEPRAZOLE [Suspect]
  4. AMLODIPINE BESYLATE [Suspect]

REACTIONS (1)
  - TUBERCULOSIS [None]
